FAERS Safety Report 10745350 (Version 1)
Quarter: 2015Q1

REPORT INFORMATION
  Report Type: Spontaneous
  Country: US (occurrence: None)
  Receive Date: 20150120
  Receipt Date: 20150120
  Transmission Date: 20150721
  Serious: No
  Sender: FDA-Public Use
  Company Number: AEGR000930

PATIENT
  Age: 77 Year
  Sex: Female
  Weight: 99.3 kg

DRUGS (15)
  1. METFORMIN [Suspect]
     Active Substance: METFORMIN HYDROCHLORIDE
  2. NITROSTAT (GLYCERYL TRINITRATE) [Concomitant]
  3. OMEPRAZOLE (OMEPRAZOLE) [Concomitant]
     Active Substance: OMEPRAZOLE
  4. LASIX [Concomitant]
     Active Substance: FUROSEMIDE
  5. LEVEMIR [Concomitant]
     Active Substance: INSULIN DETEMIR
  6. OMEGA 3 6 9 (OMEGA 9 FATTY ACIDS, OMEGA-3 FATTY ACIDS, OMEGA-6 FATTY ACIDS) [Concomitant]
  7. DIOVAN HCT (HYDROCHLOROTHIAZIDE, VALSARTAN) [Concomitant]
  8. ATENOLOL (ATENOLOL) [Concomitant]
     Active Substance: ATENOLOL
  9. VITAMIN E (TOCOPHERYL ACETATE) [Concomitant]
  10. VENTOLIN (SALBUTAMOL SULFATE) [Concomitant]
  11. BABY ASPIRIN (ACETYLSALICYLIC ACID) [Concomitant]
     Active Substance: ASPIRIN
  12. MULTIPLE VITAMINS (ASCORBIC ACID, ERGOCALCIFEROL, FOLIC ACID, RETINOL, TOCOPHERYL, VITAMIN B NOS) [Concomitant]
  13. CALCIUM MAGNESIUM (CALCIUM, MAGNESIUM) [Concomitant]
  14. JUXTAPID [Suspect]
     Active Substance: LOMITAPIDE MESYLATE
     Indication: TYPE IIA HYPERLIPIDAEMIA
     Route: 048
     Dates: start: 20141030, end: 20141117
  15. NOVOLOG [Concomitant]
     Active Substance: INSULIN ASPART

REACTIONS (4)
  - Pruritus [None]
  - Urticaria [None]
  - Diarrhoea [None]
  - Rash [None]

NARRATIVE: CASE EVENT DATE: 201410
